FAERS Safety Report 6133245-3 (Version None)
Quarter: 2009Q1

REPORT INFORMATION
  Report Type: 
  Country: None (occurrence: None)
  Receive Date: 20090326
  Receipt Date: 20090316
  Transmission Date: 20090719
  Serious: Yes (Death)
  Sender: FDA-Public Use
  Company Number: US-SP-2009-01126

PATIENT
  Age: 82 Year
  Sex: Male

DRUGS (5)
  1. BOTULISM ANTITOXIN [Suspect]
     Indication: BOTULISM
     Route: 065
  2. LASIX [Concomitant]
  3. NEOMYCIN [Concomitant]
  4. LEVOXYL [Concomitant]
  5. LEVOTHYROXINE SODIUM [Concomitant]

REACTIONS (1)
  - DEATH [None]
